FAERS Safety Report 8481614-9 (Version None)
Quarter: 2012Q3

REPORT INFORMATION
  Report Type: 
  Country: None (occurrence: None)
  Receive Date: 20120702
  Receipt Date: 20120621
  Transmission Date: 20120928
  Serious: Yes (Death)
  Sender: FDA-Public Use
  Company Number: JP-ASTRAZENECA-2012SE43398

PATIENT
  Age: 62 Year
  Sex: Female
  Weight: 70 kg

DRUGS (39)
  1. HADODOLIN [Concomitant]
     Indication: GASTRITIS
     Route: 048
     Dates: end: 20100831
  2. SULPYRINE [Concomitant]
     Indication: GASTRITIS
     Route: 048
     Dates: end: 20100831
  3. BROVARIN [Concomitant]
     Indication: GASTRITIS
     Route: 048
     Dates: end: 20100831
  4. COBANDAXIN [Concomitant]
     Indication: MIGRAINE
     Route: 048
     Dates: end: 20100831
  5. CLEAMINE S [Concomitant]
     Indication: MIGRAINE
     Route: 048
     Dates: end: 20100831
  6. RANITIDINE [Concomitant]
     Indication: GASTRITIS
     Dosage: TABLETS 150 KN
     Route: 048
     Dates: start: 20010101, end: 20100831
  7. MOHRUS PUP [Concomitant]
     Indication: BACK PAIN
     Route: 062
  8. MIGSIS [Concomitant]
     Indication: MIGRAINE
     Route: 048
     Dates: end: 20100831
  9. BROCIN [Concomitant]
     Indication: BRONCHITIS CHRONIC
     Route: 048
     Dates: end: 20100831
  10. PLETASMIN [Concomitant]
     Indication: BRONCHITIS CHRONIC
     Route: 048
     Dates: end: 20100831
  11. CEFAZOLIN SODIUM [Concomitant]
     Indication: PERIODONTITIS
     Route: 048
  12. ALYSE S [Concomitant]
     Indication: GASTRITIS
     Route: 048
     Dates: end: 20100831
  13. MAGNESIUM OXIDE [Concomitant]
     Indication: GASTRITIS
     Route: 048
     Dates: end: 20100831
  14. YOUZUREN S [Concomitant]
     Indication: GASTRITIS
     Route: 048
     Dates: end: 20010831
  15. RESTAMIN KOWA [Concomitant]
     Indication: PRURITUS
     Route: 062
  16. LENDORMIN [Concomitant]
     Indication: INSOMNIA
     Route: 048
  17. NORVASC [Concomitant]
     Indication: HYPERTENSION
     Route: 048
     Dates: end: 20100831
  18. MEFENAMIC ACID [Concomitant]
     Indication: GASTRITIS
     Route: 048
     Dates: end: 20100831
  19. SUZUTOLON [Concomitant]
     Indication: MIGRAINE
     Route: 048
     Dates: end: 20100831
  20. MUCOSTA [Concomitant]
     Indication: GASTRITIS
     Route: 048
     Dates: end: 20100831
  21. WASSER V [Concomitant]
     Indication: STOMATITIS
     Route: 048
     Dates: start: 20020919, end: 20100831
  22. EPINASTINE HYDROCHLORIDE [Concomitant]
     Indication: RHINITIS ALLERGIC
     Route: 048
     Dates: start: 20020221, end: 20100831
  23. MUCODYNE [Concomitant]
     Indication: BRONCHITIS CHRONIC
     Route: 048
     Dates: end: 20100831
  24. CARNACULIN [Concomitant]
     Indication: DIZZINESS
     Route: 048
     Dates: start: 20061127, end: 20100831
  25. ECARD COMBINATION TABLETS HD [Suspect]
     Indication: HYPERTENSION
     Dosage: 1 DF DAILY
     Route: 048
     Dates: start: 20100331, end: 20100831
  26. ALIMAN [Concomitant]
     Indication: BRONCHITIS CHRONIC
     Route: 048
     Dates: end: 20100831
  27. CHLORPHENIRAMINE MALEATE [Concomitant]
     Indication: BRONCHITIS CHRONIC
     Route: 048
     Dates: end: 20100831
  28. COBALOKININ [Concomitant]
     Indication: MIGRAINE
     Route: 048
     Dates: end: 20100831
  29. LIVALO [Concomitant]
     Indication: DYSLIPIDAEMIA
     Route: 048
     Dates: start: 20040624, end: 20100831
  30. ETODOLAC [Concomitant]
     Indication: MIGRAINE
     Route: 048
     Dates: end: 20100831
  31. CODEINE PHOSPHATE [Concomitant]
     Indication: BRONCHITIS CHRONIC
     Route: 048
     Dates: end: 20100831
  32. MEIACT [Concomitant]
     Indication: PERIODONTITIS
     Route: 048
  33. NEBUSN [Concomitant]
     Indication: GASTRITIS
     Route: 048
     Dates: end: 20100831
  34. TEFMETIN [Concomitant]
     Indication: GASTRITIS
     Route: 048
     Dates: end: 20100831
  35. CAFFEINE [Concomitant]
     Indication: GASTRITIS
     Route: 048
     Dates: end: 20100831
  36. METHY F [Concomitant]
     Indication: BRONCHITIS CHRONIC
     Route: 048
     Dates: end: 20100831
  37. TSUMURA SHAKUYAKUKANZOUTOU [Concomitant]
     Indication: MUSCLE SPASMS
     Route: 048
     Dates: start: 20080820, end: 20100831
  38. AZUNOL GARGLE LIQUID [Concomitant]
     Indication: STOMATITIS
     Route: 049
  39. ZEPELIN [Concomitant]
     Indication: CONJUNCTIVITIS ALLERGIC
     Route: 047

REACTIONS (1)
  - SUDDEN DEATH [None]
